APPROVED DRUG PRODUCT: SOYACAL 10%
Active Ingredient: SOYBEAN OIL
Strength: 10%
Dosage Form/Route: INJECTABLE;INJECTION
Application: N018465 | Product #001
Applicant: ALPHA THERAPEUTIC CORP
Approved: Jun 29, 1983 | RLD: No | RS: No | Type: DISCN